FAERS Safety Report 23994040 (Version 1)
Quarter: 2024Q2

REPORT INFORMATION
  Report Type: Report from Study
  Country: IN (occurrence: IN)
  Receive Date: 20240620
  Receipt Date: 20240620
  Transmission Date: 20240716
  Serious: Yes (Hospitalization, Other)
  Sender: FDA-Public Use
  Company Number: IN-Accord-430752

PATIENT
  Age: 35 Year
  Sex: Male

DRUGS (1)
  1. METHOTREXATE [Suspect]
     Active Substance: METHOTREXATE
     Indication: Psoriasis
     Dosage: 15 MG X 9 DAYS

REACTIONS (5)
  - Stomatitis [Unknown]
  - Skin erosion [Unknown]
  - Hyperbilirubinaemia [Unknown]
  - Pancytopenia [Recovered/Resolved]
  - Cellulitis [Unknown]
